FAERS Safety Report 12201304 (Version 1)
Quarter: 2016Q1

REPORT INFORMATION
  Report Type: Spontaneous
  Country: US (occurrence: US)
  Receive Date: 20160322
  Receipt Date: 20160322
  Transmission Date: 20160526
  Serious: No
  Sender: FDA-Public Use
  Company Number: US-SA-2015SA046819

PATIENT
  Age: 56 Year
  Sex: Female

DRUGS (1)
  1. NASACORT ALLERGY 24HR [Suspect]
     Active Substance: TRIAMCINOLONE ACETONIDE
     Dosage: DOSE AND FORM: 2 SPRAY PER NOSTRILS
     Route: 045
     Dates: start: 20150403

REACTIONS (3)
  - Vision blurred [Unknown]
  - Tinnitus [Unknown]
  - Dizziness [Unknown]

NARRATIVE: CASE EVENT DATE: 20150407
